FAERS Safety Report 5562476-6 (Version None)
Quarter: 2007Q4

REPORT INFORMATION
  Report Type: 
  Country: None (occurrence: None)
  Receive Date: 20071215
  Receipt Date: 20070103
  Transmission Date: 20080405
  Serious: No
  Sender: FDA-Public Use
  Company Number: US-AMGEN-US196445

PATIENT
  Sex: Female

DRUGS (2)
  1. ENBREL [Suspect]
     Indication: PSORIASIS
     Route: 058
     Dates: start: 20060927, end: 20061128
  2. EXCEDRIN (MIGRAINE) [Concomitant]
     Route: 065

REACTIONS (3)
  - BREAST TENDERNESS [None]
  - INJECTION SITE IRRITATION [None]
  - INJECTION SITE REACTION [None]
